FAERS Safety Report 6767731-X (Version None)
Quarter: 2010Q2

REPORT INFORMATION
  Report Type: 
  Country: None (occurrence: None)
  Receive Date: 20100614
  Receipt Date: 20100607
  Transmission Date: 20101027
  Serious: Yes (Other)
  Sender: FDA-Public Use
  Company Number: CA-ASTRAZENECA-2010SE06393

PATIENT
  Age: 43 Year
  Sex: Female

DRUGS (4)
  1. CRESTOR [Suspect]
     Indication: HYPERCHOLESTEROLAEMIA
     Route: 048
  2. EZETROL [Concomitant]
     Indication: BLOOD CHOLESTEROL ABNORMAL
  3. AVAPRO [Concomitant]
     Indication: HYPERTENSION
  4. DAILY MULTIVITAMIN [Concomitant]

REACTIONS (3)
  - URINE ABNORMALITY [None]
  - URINE COLOUR ABNORMAL [None]
  - URINE ODOUR ABNORMAL [None]
